FAERS Safety Report 4414274-4 (Version None)
Quarter: 2004Q3

REPORT INFORMATION
  Report Type: 
  Country: None (occurrence: None)
  Receive Date: 20040729
  Receipt Date: 20040716
  Transmission Date: 20050211
  Serious: Yes (Hospitalization)
  Sender: FDA-Public Use
  Company Number: 2004224589FR

PATIENT
  Age: 47 Year
  Sex: Male

DRUGS (5)
  1. CELEBREX [Suspect]
     Dosage: ORAL
     Route: 048
     Dates: start: 20040510, end: 20040522
  2. DELTASONE [Suspect]
     Dosage: ORAL
     Route: 048
     Dates: start: 20040510, end: 20040522
  3. THERALENE (ALIMEMAZINE TARTRATE) [Suspect]
     Dosage: ORAL
     Route: 048
     Dates: start: 20040510, end: 20040522
  4. TETRAZEPAM (TETRAZEPAM) [Suspect]
     Dosage: ORAL
     Route: 048
     Dates: start: 20040510, end: 20040522
  5. PARIET (RABEPRAZOLE SODIUM) [Suspect]
     Dosage: ORAL
     Route: 048
     Dates: start: 20040510, end: 20040522

REACTIONS (3)
  - CHILLS [None]
  - PYREXIA [None]
  - TOXIC SKIN ERUPTION [None]
